FAERS Safety Report 15855997 (Version 7)
Quarter: 2019Q1

REPORT INFORMATION
  Report Type: Spontaneous
  Country: US (occurrence: US)
  Receive Date: 20190123
  Receipt Date: 20190305
  Transmission Date: 20190417
  Serious: Yes (Hospitalization, Other)
  Sender: FDA-Public Use
  Company Number: US-UNITED THERAPEUTICS-UNT-2019-001210

PATIENT
  Age: 68 Year
  Sex: Female
  Weight: 79.37 kg

DRUGS (4)
  1. TYVASO [Suspect]
     Active Substance: TREPROSTINIL
     Indication: PULMONARY ARTERIAL HYPERTENSION
     Dosage: 18-54 MICROGRAMS, QID
     Dates: start: 20180509
  2. TYVASO [Suspect]
     Active Substance: TREPROSTINIL
     Dosage: UNK
     Dates: start: 20190124
  3. AMLODIPINE [Concomitant]
     Active Substance: AMLODIPINE BESYLATE
     Indication: PRODUCT USED FOR UNKNOWN INDICATION
     Route: 065
  4. TYVASO [Suspect]
     Active Substance: TREPROSTINIL
     Dosage: UNK

REACTIONS (8)
  - Sneezing [Unknown]
  - Palpitations [Unknown]
  - Oropharyngeal pain [Unknown]
  - Mouth haemorrhage [Unknown]
  - Productive cough [Unknown]
  - Abdominal pain upper [Unknown]
  - Haemoptysis [Unknown]
  - Migraine [Unknown]

NARRATIVE: CASE EVENT DATE: 20190118
